FAERS Safety Report 9083402 (Version 1)
Quarter: 2013Q1

REPORT INFORMATION
  Report Type: Report from Study
  Country: US (occurrence: US)
  Receive Date: 20130130
  Receipt Date: 20130130
  Transmission Date: 20140127
  Serious: No
  Sender: FDA-Public Use
  Company Number: US-ABBOTT-12P-163-0933201-00

PATIENT
  Age: 59 Year
  Sex: Male
  Weight: 83.99 kg

DRUGS (12)
  1. HUMIRA 40 MG/0.8 ML PEN [Suspect]
     Indication: CROHN^S DISEASE
     Route: 058
     Dates: start: 20120412
  2. ASACOL [Suspect]
     Indication: PRODUCT USED FOR UNKNOWN INDICATION
  3. APRIZIO [Concomitant]
     Indication: CROHN^S DISEASE
  4. ENTOCORT [Concomitant]
     Indication: CROHN^S DISEASE
  5. AZATHIOPRINE [Concomitant]
     Indication: CROHN^S DISEASE
  6. SIMVASTATIN [Concomitant]
     Indication: BLOOD TRIGLYCERIDES
  7. SIMVASTATIN [Concomitant]
     Indication: BLOOD CHOLESTEROL
  8. GENERIC VASOTEC [Concomitant]
     Indication: PRODUCT USED FOR UNKNOWN INDICATION
  9. WATER PILLS [Concomitant]
     Indication: HYPERTENSION
  10. TRIAMTERERNE [Concomitant]
     Indication: PRODUCT USED FOR UNKNOWN INDICATION
  11. AMLODIPINE W/BENAZEPRIL [Concomitant]
     Indication: PRODUCT USED FOR UNKNOWN INDICATION
     Dosage: 5/20 MG 2 DAILY
  12. BISOPROLOL [Concomitant]
     Indication: PRODUCT USED FOR UNKNOWN INDICATION
     Dosage: 5/6.25 MG DAILY

REACTIONS (12)
  - Fatigue [Recovering/Resolving]
  - Malaise [Unknown]
  - Vomiting [Not Recovered/Not Resolved]
  - Vomiting [Recovered/Resolved]
  - Lupus-like syndrome [Not Recovered/Not Resolved]
  - Nasopharyngitis [Not Recovered/Not Resolved]
  - Nausea [Recovering/Resolving]
  - Asthenia [Recovering/Resolving]
  - Nausea [Not Recovered/Not Resolved]
  - Asthenia [Not Recovered/Not Resolved]
  - Dry mouth [Not Recovered/Not Resolved]
  - Oropharyngeal pain [Not Recovered/Not Resolved]
